FAERS Safety Report 5023572-5 (Version None)
Quarter: 2006Q2

REPORT INFORMATION
  Report Type: 
  Country: None (occurrence: None)
  Receive Date: 20060612
  Receipt Date: 20060403
  Transmission Date: 20061013
  Serious: Yes (Other)
  Sender: FDA-Public Use
  Company Number: CN-ROCHE-443443

PATIENT
  Age: 56 Year
  Sex: Male
  Weight: 95.3 kg

DRUGS (1)
  1. XENICAL [Suspect]
     Indication: OBESITY
     Route: 048
     Dates: start: 20051015, end: 20060315

REACTIONS (16)
  - BLOOD URIC ACID INCREASED [None]
  - CHEST DISCOMFORT [None]
  - CHOLELITHIASIS [None]
  - CORONARY ARTERY DISEASE [None]
  - DYSURIA [None]
  - HEPATIC STEATOSIS [None]
  - MICTURITION URGENCY [None]
  - MYOCARDIAL ISCHAEMIA [None]
  - PHARYNGOLARYNGEAL PAIN [None]
  - POLLAKIURIA [None]
  - PROSTATE EXAMINATION ABNORMAL [None]
  - PRURITUS [None]
  - SINUS ARRHYTHMIA [None]
  - SINUS BRADYCARDIA [None]
  - TINNITUS [None]
  - TRANSAMINASES INCREASED [None]
